FAERS Safety Report 8168826-9 (Version None)
Quarter: 2012Q1

REPORT INFORMATION
  Report Type: 
  Country: None (occurrence: None)
  Receive Date: 20120227
  Receipt Date: 20120111
  Transmission Date: 20120608
  Serious: Yes (Other)
  Sender: FDA-Public Use
  Company Number: CHPA2012US003495

PATIENT
  Age: 39 Year
  Sex: Female
  Weight: 62.132 kg

DRUGS (1)
  1. TIOCONAZOLE [Suspect]
     Indication: VULVOVAGINAL MYCOTIC INFECTION
     Dosage: 300 MG, ONCE/SINGLE
     Route: 067
     Dates: start: 20120107, end: 20120107

REACTIONS (3)
  - GENITAL INJURY [None]
  - VULVOVAGINAL PAIN [None]
  - THERAPEUTIC RESPONSE DECREASED [None]
